FAERS Safety Report 8578752-9 (Version None)
Quarter: 2012Q3

REPORT INFORMATION
  Report Type: 
  Country: None (occurrence: None)
  Receive Date: 20120808
  Receipt Date: 20120517
  Transmission Date: 20120928
  Serious: No
  Sender: FDA-Public Use
  Company Number: US-GLAXOSMITHKLINE-A0978043A

PATIENT
  Age: 14 Year
  Sex: Male

DRUGS (2)
  1. VELTIN [Suspect]
     Indication: ACNE
     Dosage: 1APP AT NIGHT
     Route: 061
     Dates: start: 20120510
  2. MINOCIN [Concomitant]

REACTIONS (4)
  - ERYTHEMA [None]
  - SKIN BURNING SENSATION [None]
  - PRURITUS [None]
  - SKIN EXFOLIATION [None]
